FAERS Safety Report 25654870 (Version 1)
Quarter: 2025Q3

REPORT INFORMATION
  Report Type: Report from Study
  Country: CO (occurrence: CO)
  Receive Date: 20250807
  Receipt Date: 20250807
  Transmission Date: 20251021
  Serious: Yes (Hospitalization)
  Sender: PFIZER
  Company Number: CO-PFIZER INC-PV202500094004

PATIENT
  Age: 68 Year
  Sex: Female
  Weight: 63 kg

DRUGS (1)
  1. ELREXFIO [Suspect]
     Active Substance: ELRANATAMAB-BCMM
     Indication: Plasma cell myeloma refractory
     Route: 058
     Dates: start: 20250618, end: 20250618

REACTIONS (2)
  - Bacterial diarrhoea [Unknown]
  - Salmonella bacteraemia [Unknown]

NARRATIVE: CASE EVENT DATE: 20250625
